FAERS Safety Report 21628229 (Version 1)
Quarter: 2022Q4

REPORT INFORMATION
  Report Type: Spontaneous
  Country: US (occurrence: None)
  Receive Date: 20221118
  Receipt Date: 20221118
  Transmission Date: 20230113
  Serious: Yes (Disabling)
  Sender: FDA-Public Use
  Company Number: None

PATIENT
  Age: 38 Year
  Sex: Female
  Weight: 58.5 kg

DRUGS (1)
  1. TIANEPTINE [Suspect]
     Active Substance: TIANEPTINE
     Indication: Anxiety
     Dates: start: 20221024, end: 20221115

REACTIONS (11)
  - Withdrawal syndrome [None]
  - Sedation [None]
  - Depression [None]
  - Nausea [None]
  - Vomiting [None]
  - Chills [None]
  - Pain [None]
  - Insomnia [None]
  - Diarrhoea [None]
  - Drug dependence [None]
  - Product label issue [None]

NARRATIVE: CASE EVENT DATE: 20221115
